FAERS Safety Report 23106906 (Version 1)
Quarter: 2023Q4

REPORT INFORMATION
  Report Type: Spontaneous
  Country: JP (occurrence: JP)
  Receive Date: 20231026
  Receipt Date: 20231026
  Transmission Date: 20240109
  Serious: Yes (Hospitalization, Other)
  Sender: FDA-Public Use
  Company Number: None

PATIENT
  Age: 77 Year
  Sex: Female

DRUGS (3)
  1. DONEPEZIL HYDROCHLORIDE [Suspect]
     Active Substance: DONEPEZIL HYDROCHLORIDE
     Indication: Product used for unknown indication
     Dosage: UNK,  UNK
     Route: 065
  2. DONEPEZIL HYDROCHLORIDE [Suspect]
     Active Substance: DONEPEZIL HYDROCHLORIDE
     Dosage: 150 MG, TOTAL (15 TABLETS (150 MG) OF DONEPEZIL)
     Route: 065
  3. CILOSTAZOL [Concomitant]
     Active Substance: CILOSTAZOL
     Indication: Product used for unknown indication
     Route: 065

REACTIONS (7)
  - Fall [Unknown]
  - Mydriasis [Not Recovered/Not Resolved]
  - Tremor [Not Recovered/Not Resolved]
  - Drug level increased [Recovering/Resolving]
  - Accidental overdose [Recovering/Resolving]
  - Blood pressure decreased [Recovered/Resolved]
  - Miosis [Recovered/Resolved]
